FAERS Safety Report 7743547-2 (Version None)
Quarter: 2011Q3

REPORT INFORMATION
  Report Type: 
  Country: None (occurrence: None)
  Receive Date: 20110912
  Receipt Date: 20110901
  Transmission Date: 20111222
  Serious: Yes (Other)
  Sender: FDA-Public Use
  Company Number: US-ASTRAZENECA-2011SE53003

PATIENT
  Age: 49 Year
  Sex: Male

DRUGS (1)
  1. CRESTOR [Suspect]
     Route: 048

REACTIONS (5)
  - ACCIDENT AT WORK [None]
  - TIBIA FRACTURE [None]
  - JOINT INJURY [None]
  - CHRONIC OBSTRUCTIVE PULMONARY DISEASE [None]
  - FIBULA FRACTURE [None]
